FAERS Safety Report 12310903 (Version 2)
Quarter: 2016Q2

REPORT INFORMATION
  Report Type: Spontaneous
  Country: US (occurrence: US)
  Receive Date: 20160427
  Receipt Date: 20160505
  Transmission Date: 20160815
  Serious: Yes (Other)
  Sender: FDA-Public Use
  Company Number: US-PFIZER INC-2016234093

PATIENT
  Age: 30 Year
  Sex: Male
  Weight: 98 kg

DRUGS (4)
  1. NICOTINE. [Suspect]
     Active Substance: NICOTINE
     Dosage: UNK, DAILY
     Route: 055
  2. PRISTIQ EXTENDED-RELEASE [Suspect]
     Active Substance: DESVENLAFAXINE SUCCINATE
     Dosage: UNK
  3. PRISTIQ EXTENDED-RELEASE [Suspect]
     Active Substance: DESVENLAFAXINE SUCCINATE
     Dosage: 50 MG, DAILY
     Dates: start: 201601
  4. CANNABIS OILS [Suspect]
     Active Substance: CANNABIS SATIVA SEED OIL
     Dosage: UNK

REACTIONS (4)
  - Obsessive-compulsive disorder [Unknown]
  - Paranoia [Unknown]
  - Anxiety [Unknown]
  - Irritability [Unknown]
